FAERS Safety Report 14950767 (Version 1)
Quarter: 2018Q2

REPORT INFORMATION
  Report Type: Spontaneous
  Country: IT (occurrence: IT)
  Receive Date: 20180530
  Receipt Date: 20180530
  Transmission Date: 20180711
  Serious: Yes (Other)
  Sender: FDA-Public Use
  Company Number: IT-ACCORD-050099

PATIENT
  Age: 59 Year
  Sex: Male
  Weight: 44 kg

DRUGS (2)
  1. FLUOROURACIL. [Suspect]
     Active Substance: FLUOROURACIL
     Indication: GASTRIC CANCER
     Dosage: ONGOING
     Route: 041
     Dates: start: 20170314
  2. OXALIPLATIN. [Suspect]
     Active Substance: OXALIPLATIN
     Indication: GASTRIC CANCER
     Dosage: ONGOING
     Route: 042
     Dates: start: 20170314

REACTIONS (5)
  - Neutropenia [Recovered/Resolved]
  - Leukopenia [Recovered/Resolved]
  - Paraesthesia [Recovered/Resolved]
  - Off label use [Unknown]
  - Nausea [Recovering/Resolving]

NARRATIVE: CASE EVENT DATE: 20170327
